FAERS Safety Report 18865271 (Version 2)
Quarter: 2021Q2

REPORT INFORMATION
  Report Type: Spontaneous
  Country: US (occurrence: US)
  Receive Date: 20210208
  Receipt Date: 20210415
  Transmission Date: 20210717
  Serious: No
  Sender: FDA-Public Use
  Company Number: US-SUNOVION-2021SUN000227

PATIENT
  Age: 62 Year
  Sex: Male

DRUGS (1)
  1. LONHALA MAGNAIR [Suspect]
     Active Substance: GLYCOPYRROLATE
     Dosage: 25 ?G
     Route: 055
     Dates: start: 20210122

REACTIONS (4)
  - Cough [Unknown]
  - Drug administered in wrong device [Unknown]
  - Device issue [Unknown]
  - Device delivery system issue [Unknown]
